FAERS Safety Report 24610571 (Version 2)
Quarter: 2024Q4

REPORT INFORMATION
  Report Type: Spontaneous
  Country: US (occurrence: US)
  Receive Date: 20241112
  Receipt Date: 20241127
  Transmission Date: 20250115
  Serious: Yes (Other)
  Sender: BAYER HEALTHCARE PHARMACEUTICALS INC.
  Company Number: US-BAYER-2024A159625

PATIENT
  Age: 37 Year
  Sex: Male

DRUGS (4)
  1. JIVI [Suspect]
     Active Substance: DAMOCTOCOG ALFA PEGOL
     Indication: Haemorrhage
     Dosage: JIVI 3334 UNITS/INFUSE 3500 UNITS EVERY 5 DAYS
     Route: 042
  2. JIVI [Suspect]
     Active Substance: DAMOCTOCOG ALFA PEGOL
     Indication: Haemorrhage
     Dosage: 6 DF; INFUSION
     Route: 042
     Dates: start: 202411
  3. JIVI [Suspect]
     Active Substance: DAMOCTOCOG ALFA PEGOL
     Indication: Haemorrhage
     Dosage: 2 DF; INFUSION
     Dates: start: 20241111
  4. JIVI [Suspect]
     Active Substance: DAMOCTOCOG ALFA PEGOL
     Indication: Haemorrhage
     Dosage: 2 DF; INFUSION
     Dates: start: 20241114

REACTIONS (8)
  - Haemorrhage [Recovering/Resolving]
  - Haemarthrosis [Recovered/Resolved]
  - Haemarthrosis [Recovered/Resolved]
  - Road traffic accident [None]
  - Back pain [None]
  - Pain in extremity [None]
  - Arthralgia [None]
  - Joint injury [None]

NARRATIVE: CASE EVENT DATE: 20241102
